FAERS Safety Report 15689462 (Version 1)
Quarter: 2018Q4

REPORT INFORMATION
  Report Type: Spontaneous
  Country: US (occurrence: US)
  Receive Date: 20181122
  Receipt Date: 20181122
  Transmission Date: 20190205
  Serious: Yes (Life-Threatening, Hospitalization, Disabling, Other)
  Sender: FDA-Public Use
  Company Number: None

PATIENT
  Age: 58 Year
  Sex: Male
  Weight: 110.25 kg

DRUGS (8)
  1. ATORVASTATIN [Concomitant]
     Active Substance: ATORVASTATIN
  2. GLIMEPERIDE [Concomitant]
     Active Substance: GLIMEPIRIDE
  3. HYDRALDAZIDE [Concomitant]
  4. INVOKANA [Suspect]
     Active Substance: CANAGLIFLOZIN
  5. JARDIANCE [Suspect]
     Active Substance: EMPAGLIFLOZIN
     Indication: TYPE 2 DIABETES MELLITUS
     Dosage: ?          QUANTITY:1 DF DOSAGE FORM;?
     Route: 048
     Dates: start: 20180101, end: 20180515
  6. METFORMIN [Concomitant]
     Active Substance: METFORMIN HYDROCHLORIDE
  7. VICTOZA [Concomitant]
     Active Substance: LIRAGLUTIDE
  8. DAILY VITAMIN [Concomitant]
     Active Substance: VITAMINS

REACTIONS (6)
  - Tenderness [None]
  - Male sexual dysfunction [None]
  - Swelling [None]
  - Groin pain [None]
  - Musculoskeletal discomfort [None]
  - Gangrene [None]

NARRATIVE: CASE EVENT DATE: 20180515
